FAERS Safety Report 7825727-0 (Version None)
Quarter: 2011Q4

REPORT INFORMATION
  Report Type: 
  Country: None (occurrence: None)
  Receive Date: 20111019
  Receipt Date: 20111006
  Transmission Date: 20120403
  Serious: Yes (Hospitalization)
  Sender: FDA-Public Use
  Company Number: CH-ROCHE-803786

PATIENT
  Sex: Female
  Weight: 59 kg

DRUGS (7)
  1. DEXAMETHASONE [Concomitant]
  2. VEMURAFENIB [Suspect]
     Indication: METASTATIC MALIGNANT MELANOMA
     Dosage: DATE OF LAST DOSE PRIOR TO SAE: 4/OCT/2011
     Route: 048
  3. NOVALGIN [Concomitant]
  4. LEVOTHYROXINE SODIUM [Concomitant]
  5. PANTOPRAZOLE [Concomitant]
  6. LYRICA [Concomitant]
  7. REMERON [Concomitant]

REACTIONS (3)
  - C-REACTIVE PROTEIN INCREASED [None]
  - DYSPNOEA [None]
  - BREAST DISCOMFORT [None]
